FAERS Safety Report 7597141-7 (Version None)
Quarter: 2011Q3

REPORT INFORMATION
  Report Type: 
  Country: None (occurrence: None)
  Receive Date: 20110708
  Receipt Date: 20100930
  Transmission Date: 20111222
  Serious: No
  Sender: FDA-Public Use
  Company Number: US-GLAXOSMITHKLINE-A0647207A

PATIENT
  Age: 9 Year
  Sex: Male

DRUGS (3)
  1. ADVAIR DISKUS 100/50 [Suspect]
     Indication: ASTHMA
     Dosage: 1PUFF PER DAY
     Route: 055
     Dates: start: 20040101
  2. FLOVENT [Suspect]
     Indication: ASTHMA
     Dosage: 1PUFF PER DAY
     Route: 055
     Dates: start: 20100918
  3. ALBUTEROL SULFATE AUTOHALER [Concomitant]

REACTIONS (7)
  - INSOMNIA [None]
  - PEAK EXPIRATORY FLOW RATE DECREASED [None]
  - TREMOR [None]
  - PSYCHOMOTOR HYPERACTIVITY [None]
  - ABNORMAL BEHAVIOUR [None]
  - MOOD ALTERED [None]
  - MOOD SWINGS [None]
